FAERS Safety Report 18447640 (Version 2)
Quarter: 2020Q4

REPORT INFORMATION
  Report Type: Other
  Country: JP (occurrence: JP)
  Receive Date: 20201101
  Receipt Date: 20201104
  Transmission Date: 20210114
  Serious: Yes (Other)
  Sender: FDA-Public Use
  Company Number: JP-ROCHE-2704953

PATIENT
  Age: 34 Year
  Sex: Female

DRUGS (2)
  1. TYKERB [Concomitant]
     Active Substance: LAPATINIB DITOSYLATE
     Indication: BREAST CANCER
     Dosage: DOSAGE IS UNCERTAIN
     Route: 048
  2. XELODA [Suspect]
     Active Substance: CAPECITABINE
     Indication: BREAST CANCER
     Dosage: DOSAGE IS UNCERTAIN
     Route: 048

REACTIONS (1)
  - Drug-induced liver injury [Unknown]
